FAERS Safety Report 10060044 (Version 1)
Quarter: 2014Q2

REPORT INFORMATION
  Report Type: Report from Study
  Country: US (occurrence: US)
  Receive Date: 20140404
  Receipt Date: 20140404
  Transmission Date: 20141212
  Serious: Yes (Hospitalization)
  Sender: FDA-Public Use
  Company Number: US-ACTELION-A-NJ2014-96853

PATIENT
  Age: 72 Year
  Sex: Female

DRUGS (10)
  1. MACITENTAN [Suspect]
     Indication: COR PULMONALE CHRONIC
     Dosage: 10 MG, UNK
     Route: 048
     Dates: start: 20140218
  2. TYVASO [Concomitant]
     Dosage: UNK
     Dates: end: 20140304
  3. CALTRATE [Concomitant]
     Dosage: UNK
  4. XANAX [Concomitant]
     Dosage: UNK
  5. SPIRONOLACTONE [Concomitant]
     Dosage: UNK
  6. ALLOPURINOL [Concomitant]
     Dosage: UNK
  7. LIPITOR [Concomitant]
     Dosage: UNK
  8. ATENOLOL [Concomitant]
     Dosage: UNK
  9. PERSANTINE [Concomitant]
     Dosage: UNK
  10. LANOXIN [Concomitant]
     Dosage: UNK

REACTIONS (7)
  - Fall [Recovering/Resolving]
  - Facial bones fracture [Unknown]
  - Periorbital contusion [Unknown]
  - Cellulitis [Unknown]
  - Cerebral haemorrhage [Unknown]
  - Loss of consciousness [Unknown]
  - Contusion [Unknown]
